FAERS Safety Report 9742553 (Version 1)
Quarter: 2013Q4

REPORT INFORMATION
  Report Type: Spontaneous
  Country: US (occurrence: US)
  Receive Date: 20131210
  Receipt Date: 20131210
  Transmission Date: 20140711
  Serious: Yes (Life-Threatening, Hospitalization)
  Sender: FDA-Public Use
  Company Number: US-MYLANLABS-2013S1027000

PATIENT
  Age: 20 Year
  Sex: Female

DRUGS (23)
  1. PROPOFOL [Suspect]
     Indication: STATUS EPILEPTICUS
     Dosage: INFUSION; INCREASED TO 150 MICROG/KG/MIN AFTER 24H
     Route: 050
  2. PROPOFOL [Suspect]
     Indication: STATUS EPILEPTICUS
     Dosage: 150 MICROG/KG/MIN (9 MG/KG/H) INFUSION
     Route: 050
  3. AMIODARONE [Suspect]
     Route: 065
  4. LORAZEPAM [Concomitant]
     Indication: CONVULSION
     Route: 065
  5. MIDAZOLAM [Concomitant]
     Indication: STATUS EPILEPTICUS
     Route: 065
  6. PHENYTOIN [Concomitant]
     Indication: STATUS EPILEPTICUS
     Route: 065
  7. VALPROIC ACID [Concomitant]
     Indication: STATUS EPILEPTICUS
     Route: 065
  8. CEFTRIAXONE [Concomitant]
     Indication: MENINGITIS
     Route: 065
  9. VANCOMYCIN [Concomitant]
     Indication: MENINGITIS
     Route: 065
  10. EPINEPHRINE [Concomitant]
     Indication: BLOOD PRESSURE MANAGEMENT
     Dosage: DRIP TITRATED TO 150 NG/KG/MIN; LATER RECEIVED 6 X 1MG DOSES
     Route: 050
  11. EPINEPHRINE [Concomitant]
     Indication: VENTRICULAR TACHYCARDIA
     Dosage: 6 X 1MG DOSES
     Route: 065
  12. EPINEPHRINE [Concomitant]
     Indication: VENTRICULAR FIBRILLATION
     Route: 065
  13. CALCIUM W/MAGNESIUM [Concomitant]
     Route: 065
  14. LIDOCAINE [Concomitant]
     Indication: VENTRICULAR TACHYCARDIA
     Route: 042
  15. HEPARIN [Concomitant]
     Indication: ANTICOAGULANT THERAPY
     Dosage: 10 000 UNITS; REQUIRED ESCALATING DOSES TO ACHIEVE TARGET ACT
     Route: 065
  16. CALCIUM CHLORIDE [Concomitant]
     Route: 065
  17. INSULIN [Concomitant]
     Route: 065
  18. GLUCOSE [Concomitant]
     Route: 065
  19. SODIUM POLYSTYRENE SULFONATE [Concomitant]
     Route: 065
  20. ARGATROBAN [Concomitant]
     Indication: ANTICOAGULANT THERAPY
     Route: 065
  21. ISOPRENALINE [Concomitant]
     Indication: ARRHYTHMIA
     Dosage: INFUSION
     Route: 050
  22. EPINEPHRINE [Concomitant]
     Indication: ARRHYTHMIA
     Dosage: INFUSION
     Route: 050
  23. DOPAMINE [Concomitant]
     Indication: ARRHYTHMIA
     Dosage: INFUSION
     Route: 050

REACTIONS (5)
  - Propofol infusion syndrome [Recovering/Resolving]
  - Pulmonary calcification [Unknown]
  - Cardiac ventricular thrombosis [Recovering/Resolving]
  - Ischaemic stroke [Recovering/Resolving]
  - Toxicity to various agents [Unknown]
